FAERS Safety Report 25987988 (Version 3)
Quarter: 2025Q4

REPORT INFORMATION
  Report Type: Report from Study
  Country: US (occurrence: US)
  Receive Date: 20251103
  Receipt Date: 20251230
  Transmission Date: 20260117
  Serious: Yes (Congenital Anomaly, Other)
  Sender: ALEXION PHARMACEUTICALS
  Company Number: US-AstraZeneca-CH-00981822A

PATIENT

DRUGS (1)
  1. RAVULIZUMAB [Suspect]
     Active Substance: RAVULIZUMAB
     Indication: Myasthenia gravis
     Dosage: UNK
     Route: 065

REACTIONS (9)
  - Gait disturbance [Unknown]
  - Embolism [Unknown]
  - Frustration tolerance decreased [Unknown]
  - Depression [Unknown]
  - Dyspnoea [Unknown]
  - Insomnia [Unknown]
  - Musculoskeletal pain [Unknown]
  - Back pain [Unknown]
  - Off label use [Unknown]
